FAERS Safety Report 9842221 (Version 2)
Quarter: 2014Q1

REPORT INFORMATION
  Report Type: Spontaneous
  Country: US (occurrence: US)
  Receive Date: 20140124
  Receipt Date: 20140124
  Transmission Date: 20141002
  Serious: Yes (Hospitalization, Disabling, Other)
  Sender: FDA-Public Use
  Company Number: US-009507513-1205USA02812

PATIENT
  Sex: Female
  Weight: 93.88 kg

DRUGS (3)
  1. FOSAMAX [Suspect]
     Indication: OSTEOPOROSIS
     Dosage: 70 MG, QW
     Route: 048
     Dates: start: 2005, end: 2010
  2. ALENDRONATE SODIUM [Suspect]
     Dosage: 70 MG, UNK
     Route: 048
  3. CALCIUM D3 [Concomitant]
     Dosage: 1 PILL A DAY
     Dates: start: 1990

REACTIONS (24)
  - Osteoarthritis [Unknown]
  - Osteoarthritis [Unknown]
  - Anaemia [Unknown]
  - Arrhythmia [Unknown]
  - Deep vein thrombosis [Unknown]
  - Nasopharyngitis [Recovered/Resolved]
  - Cardiac murmur [Unknown]
  - Arthritis [Unknown]
  - Constipation [Not Recovered/Not Resolved]
  - Femur fracture [Unknown]
  - Intramedullary rod insertion [Unknown]
  - Low turnover osteopathy [Unknown]
  - Osteoporosis [Unknown]
  - Multiple fractures [Unknown]
  - Cholecystectomy [Unknown]
  - Colon cancer [Unknown]
  - Foot fracture [Unknown]
  - Systemic lupus erythematosus [Unknown]
  - Humerus fracture [Unknown]
  - Angiopathy [Unknown]
  - Limb operation [Unknown]
  - Anaemia postoperative [Recovered/Resolved]
  - Vascular calcification [Unknown]
  - Osteoarthritis [Unknown]
